FAERS Safety Report 7873877-5 (Version None)
Quarter: 2011Q4

REPORT INFORMATION
  Report Type: 
  Country: None (occurrence: None)
  Receive Date: 20111030
  Receipt Date: 20110511
  Transmission Date: 20120403
  Serious: No
  Sender: FDA-Public Use
  Company Number: US-AMGEN-USASP2011024647

PATIENT
  Sex: Female

DRUGS (2)
  1. ENBREL [Suspect]
     Indication: RHEUMATOID ARTHRITIS
     Dosage: 50 MG, QWK
     Dates: start: 20050601
  2. METHOTREXATE [Concomitant]
     Dosage: 1 MG, QWK
     Dates: start: 20090101

REACTIONS (4)
  - MUSCULOSKELETAL DISCOMFORT [None]
  - BACK PAIN [None]
  - SKIN HYPERTROPHY [None]
  - PAIN IN EXTREMITY [None]
